FAERS Safety Report 8418180-X (Version None)
Quarter: 2012Q2

REPORT INFORMATION
  Report Type: 
  Country: None (occurrence: None)
  Receive Date: 20120607
  Receipt Date: 20120530
  Transmission Date: 20120825
  Serious: Yes (Other)
  Sender: FDA-Public Use
  Company Number: US-TEVA-340679USA

PATIENT
  Sex: Female

DRUGS (2)
  1. COPAXONE [Suspect]
     Indication: MULTIPLE SCLEROSIS
     Dosage: 20 MILLIGRAM;
     Route: 058
  2. INTERFERON BETA NOS [Suspect]
     Indication: MULTIPLE SCLEROSIS
     Dates: start: 20111228, end: 20120301

REACTIONS (1)
  - BREAST CANCER [None]
